FAERS Safety Report 12744845 (Version 1)
Quarter: 2016Q3

REPORT INFORMATION
  Report Type: Spontaneous
  Country: BE (occurrence: BE)
  Receive Date: 20160915
  Receipt Date: 20160915
  Transmission Date: 20161109
  Serious: Yes (Other)
  Sender: FDA-Public Use
  Company Number: BE-ROCHE-1829141

PATIENT
  Age: 67 Year
  Sex: Female
  Weight: 55 kg

DRUGS (2)
  1. CYMEVENE [Suspect]
     Active Substance: GANCICLOVIR
     Indication: CYTOMEGALOVIRUS INFECTION
     Route: 042
     Dates: start: 20160303, end: 20160318
  2. BACTRIM [Suspect]
     Active Substance: SULFAMETHOXAZOLE\TRIMETHOPRIM
     Indication: PRODUCT USED FOR UNKNOWN INDICATION
     Route: 065

REACTIONS (4)
  - Dyspnoea [Unknown]
  - Acute myeloid leukaemia recurrent [Unknown]
  - Graft versus host disease [Unknown]
  - Tachycardia [Unknown]

NARRATIVE: CASE EVENT DATE: 201604
